FAERS Safety Report 8389693 (Version 2)
Quarter: 2012Q4

REPORT INFORMATION
  Report Type: 
  Country: ES (occurrence: ES)
  Receive Date: 20120203
  Receipt Date: 20121102
  Transmission Date: 20130627
  Serious: Yes (Hospitalization, Other)
  Sender: FDA-Public Use
  Company Number: ES-ELI_LILLY_AND_COMPANY-ES201201007150

PATIENT
  Age: 74 Year
  Sex: Female
  Weight: 70 kg

DRUGS (10)
  1. FORSTEO [Suspect]
     Indication: OSTEOPOROSIS
     Dosage: 20 ug, qd
     Route: 058
     Dates: start: 20101008, end: 201208
  2. FORSTEO [Suspect]
     Dosage: 20 ug, qd
     Route: 058
     Dates: start: 201210
  3. NAVIXEN PLUS [Concomitant]
     Indication: HYPERTENSION
     Dosage: 1 DF, qd
     Route: 048
     Dates: start: 2006
  4. ARCOXIA [Concomitant]
     Indication: OSTEOPOROSIS
     Dosage: 60 mg, qd
     Route: 048
     Dates: start: 2011
  5. PONTALSIC [Concomitant]
     Indication: PAIN
     Dosage: 6 DF, qd
     Route: 048
     Dates: start: 2009
  6. OMEPRAZOL [Concomitant]
     Indication: GASTRIC DISORDER
     Dosage: 1 DF, qd
     Route: 048
     Dates: start: 2009
  7. CIPRALEX [Concomitant]
     Indication: DEPRESSION
     Dosage: 1 DF, qd
     Route: 048
     Dates: start: 2010
  8. ALPROZOLAM [Concomitant]
     Indication: ANXIETY
     Dosage: 0.25 mg, qd
     Route: 048
     Dates: start: 2009
  9. SOMAZINA [Concomitant]
     Indication: CEREBROVASCULAR DISORDER
     Dosage: 200 mg, qd
     Route: 048
     Dates: start: 2009
  10. CONDRO SAN [Concomitant]
     Indication: OSTEOPOROSIS
     Dosage: 800 mg, qd
     Route: 048
     Dates: start: 2009

REACTIONS (5)
  - Hip fracture [Unknown]
  - Fall [Recovering/Resolving]
  - Device failure [Unknown]
  - Infection [Unknown]
  - Mobility decreased [Unknown]
